FAERS Safety Report 22366301 (Version 1)
Quarter: 2023Q2

REPORT INFORMATION
  Report Type: Spontaneous
  Country: US (occurrence: US)
  Receive Date: 20230525
  Receipt Date: 20230525
  Transmission Date: 20230722
  Serious: Yes (Hospitalization, Other)
  Sender: FDA-Public Use
  Company Number: US-CIPLA LTD.-2023US02718

PATIENT

DRUGS (3)
  1. CITALOPRAM [Suspect]
     Active Substance: CITALOPRAM HYDROBROMIDE
     Dosage: 3 CITALOPRAM 40 MG, UNK
     Route: 048
  2. ANAGRELIDE [Suspect]
     Active Substance: ANAGRELIDE
     Dosage: 54 ANAGRELIDE 0.5 MG, UNK
     Route: 048
  3. CLONAZEPAM [Suspect]
     Active Substance: CLONAZEPAM
     Dosage: 3 CLONAZEPAM 0.5 MG, UNK
     Route: 048

REACTIONS (10)
  - Pupillary reflex impaired [Recovering/Resolving]
  - Hypotension [Recovering/Resolving]
  - Suicide attempt [Unknown]
  - Sinus tachycardia [Recovering/Resolving]
  - Electrocardiogram QT prolonged [Recovering/Resolving]
  - Orthostatic hypotension [Recovering/Resolving]
  - Somnolence [Recovering/Resolving]
  - Intentional overdose [Unknown]
  - Periorbital haemorrhage [Recovering/Resolving]
  - Epistaxis [Recovering/Resolving]
